FAERS Safety Report 21417191 (Version 2)
Quarter: 2022Q4

REPORT INFORMATION
  Report Type: Spontaneous
  Country: CL (occurrence: CL)
  Receive Date: 20221006
  Receipt Date: 20221104
  Transmission Date: 20230113
  Serious: Yes (Hospitalization, Other)
  Sender: FDA-Public Use
  Company Number: CL-TEVA-2022-CL-2079773

PATIENT
  Age: 78 Year
  Sex: Female

DRUGS (3)
  1. PREDNISONE [Suspect]
     Active Substance: PREDNISONE
     Indication: Rheumatoid arthritis
     Dosage: 10 MILLIGRAM DAILY;
     Route: 065
  2. TERBINAFINE [Suspect]
     Active Substance: TERBINAFINE
     Indication: Scedosporium infection
     Dosage: 250 MILLIGRAM DAILY;
     Route: 048
  3. AZATHIOPRINE [Suspect]
     Active Substance: AZATHIOPRINE
     Indication: Rheumatoid arthritis
     Dosage: 100 MILLIGRAM DAILY;
     Route: 065

REACTIONS (12)
  - Neutropenia [Recovered/Resolved]
  - Leukopenia [Unknown]
  - Scedosporium infection [Recovered/Resolved]
  - Oral candidiasis [Unknown]
  - Herpes oesophagitis [Unknown]
  - Mouth ulceration [Unknown]
  - Scleritis [Unknown]
  - Uveitis [Unknown]
  - Choroidal detachment [Unknown]
  - Rash [Unknown]
  - Macule [Unknown]
  - Rash erythematous [Unknown]
